FAERS Safety Report 5892541-5 (Version None)
Quarter: 2008Q3

REPORT INFORMATION
  Report Type: 
  Country: None (occurrence: None)
  Receive Date: 20080919
  Receipt Date: 20080908
  Transmission Date: 20090109
  Serious: No
  Sender: FDA-Public Use
  Company Number: C-08-0043

PATIENT
  Age: 18 Year
  Sex: Female
  Weight: 54.4316 kg

DRUGS (1)
  1. LINDANE [Suspect]
     Indication: LICE INFESTATION
     Dosage: 1 APLICATION- TOPICAL
     Route: 061
     Dates: start: 20080903

REACTIONS (1)
  - DRUG INEFFECTIVE [None]
